FAERS Safety Report 24071937 (Version 1)
Quarter: 2024Q3

REPORT INFORMATION
  Report Type: Spontaneous
  Country: US (occurrence: None)
  Receive Date: 20240709
  Receipt Date: 20240709
  Transmission Date: 20241017
  Serious: Yes (Other)
  Sender: Public
  Company Number: None

PATIENT
  Age: 47 Year
  Sex: Female
  Weight: 78.75 kg

DRUGS (6)
  1. EFFEXOR XR [Suspect]
     Active Substance: VENLAFAXINE HYDROCHLORIDE
     Indication: Hot flush
     Dosage: OTHER QUANTITY : 1 CAPSULE(S);?FREQUENCY : DAILY;?
     Route: 048
     Dates: start: 20240429, end: 20240620
  2. EFFEXOR XR [Suspect]
     Active Substance: VENLAFAXINE HYDROCHLORIDE
     Indication: Anxiety
  3. DEVICE [Concomitant]
     Active Substance: DEVICE
  4. AMLODIPINE [Concomitant]
     Active Substance: AMLODIPINE BESYLATE
  5. IRON [Concomitant]
     Active Substance: IRON
  6. VENLAFAXINE [Concomitant]
     Active Substance: VENLAFAXINE HYDROCHLORIDE

REACTIONS (18)
  - Brain fog [None]
  - Depression [None]
  - Anxiety [None]
  - Decreased activity [None]
  - Therapy cessation [None]
  - Hyperhidrosis [None]
  - Dizziness [None]
  - Abdominal pain upper [None]
  - Diarrhoea [None]
  - Chest discomfort [None]
  - Dyspepsia [None]
  - Chest pain [None]
  - Drug withdrawal syndrome [None]
  - Pain in extremity [None]
  - Insomnia [None]
  - Abdominal pain upper [None]
  - Syncope [None]
  - Heart rate increased [None]

NARRATIVE: CASE EVENT DATE: 20240623
